FAERS Safety Report 11734022 (Version 2)
Quarter: 2017Q1

REPORT INFORMATION
  Report Type: Spontaneous
  Country: US (occurrence: US)
  Receive Date: 20151113
  Receipt Date: 20170202
  Transmission Date: 20170428
  Serious: Yes (Other)
  Sender: FDA-Public Use
  Company Number: US-ASTRAZENECA-2015SF08184

PATIENT
  Sex: Female

DRUGS (1)
  1. BRILINTA [Suspect]
     Active Substance: TICAGRELOR
     Indication: ACUTE CORONARY SYNDROME
     Route: 048

REACTIONS (6)
  - Nausea [Recovered/Resolved]
  - Myocardial infarction [Unknown]
  - Pain [Unknown]
  - Malaise [Unknown]
  - Oropharyngeal pain [Recovering/Resolving]
  - Musculoskeletal stiffness [Unknown]
